FAERS Safety Report 5423747-7 (Version None)
Quarter: 2007Q3

REPORT INFORMATION
  Report Type: 
  Country: None (occurrence: None)
  Receive Date: 20070727
  Receipt Date: 20040629
  Transmission Date: 20080115
  Serious: No
  Sender: FDA-Public Use
  Company Number: THYM-10232

PATIENT
  Age: 54 Year
  Sex: Male
  Weight: 97 kg

DRUGS (6)
  1. THYMOGLOBULIN [Suspect]
     Indication: RENAL TRANSPLANT
     Dosage: 75 MG
     Dates: start: 20030820, end: 20030822
  2. TACROLIMUS [Concomitant]
  3. SOLU-MEDROL [Concomitant]
  4. CELLCEPT [Concomitant]
  5. FAMOTIDINE [Concomitant]
  6. SULFAMETHOXAZOLE AND TRIMETHOPRIM [Concomitant]

REACTIONS (2)
  - COMPLICATIONS OF TRANSPLANT SURGERY [None]
  - NEPHRECTOMY [None]
